FAERS Safety Report 8370778-3 (Version None)
Quarter: 2012Q2

REPORT INFORMATION
  Report Type: 
  Country: None (occurrence: None)
  Receive Date: 20120518
  Receipt Date: 20120510
  Transmission Date: 20120825
  Serious: Yes (Death, Life-Threatening, Hospitalization)
  Sender: FDA-Public Use
  Company Number: FR-PFIZER INC-2012005393

PATIENT
  Age: 74 Year
  Sex: Male
  Weight: 75 kg

DRUGS (18)
  1. RABEPRAZOLE [Concomitant]
     Indication: DYSPEPSIA
     Dosage: 10 MG, 1X/DAY
     Route: 048
     Dates: start: 20111206, end: 20120106
  2. LASIX [Concomitant]
     Indication: HYPERTENSION
     Dosage: 40 MG, 1X/DAY
     Route: 048
     Dates: start: 20111220, end: 20120107
  3. ACETAMINOPHEN [Concomitant]
     Indication: PAIN
     Dosage: 1 G, 3X/DAY
     Route: 048
     Dates: start: 20111216, end: 20111227
  4. SPIRIVA [Concomitant]
     Indication: ASTHMA
     Dosage: 18 UG, 1X/DAY
     Route: 048
     Dates: start: 19970101, end: 20120107
  5. LEVOTHYROXINE SODIUM [Concomitant]
     Indication: HYPOTHYROIDISM
     Dosage: 100 UG, 1X/DAY
     Route: 048
     Dates: start: 20111222, end: 20120108
  6. REPAGLINIDE [Concomitant]
     Indication: DIABETES MELLITUS
     Dosage: 1 MG, 3X/DAY
     Route: 048
     Dates: start: 20000101, end: 20120106
  7. MONTELUKAST [Concomitant]
     Indication: ASTHMA
     Dosage: 10 MG, 1X/DAY
     Route: 048
     Dates: start: 19970101, end: 20120107
  8. DOMPERIDONE [Concomitant]
     Indication: NAUSEA
     Dosage: 10 MG, 2X/DAY
     Route: 048
     Dates: start: 20101217, end: 20120106
  9. TRAMADOL HCL [Concomitant]
     Indication: PAIN
     Dosage: 3X/DAY
     Route: 048
     Dates: start: 20111222, end: 20120103
  10. INNOVAR [Concomitant]
     Indication: ASTHMA
     Dosage: 2X/DAY
     Route: 048
     Dates: start: 19970101, end: 20120106
  11. AUGMENTIN [Concomitant]
     Dosage: 1 G, 2X/DAY
     Route: 048
     Dates: start: 20111216, end: 20111227
  12. AMLODIPINE [Concomitant]
     Indication: HYPERTENSION
     Dosage: 5 MG, 1X/DAY
     Route: 048
     Dates: start: 20111124, end: 20120106
  13. BISOPROLOL FUMARATE AND HYDROCHLOROTHIAZIDE [Concomitant]
     Indication: HYPERTENSION
     Dosage: 5MG /6.25MG ONCE PER DAY
     Route: 048
     Dates: start: 20000101, end: 20120106
  14. IBUPROFEN [Concomitant]
     Indication: PAIN
     Dosage: 200 MG, 2X/DAY
     Route: 048
     Dates: start: 20111216, end: 20111219
  15. DURAGESIC-100 [Concomitant]
     Indication: PAIN
     Dosage: 25 UG, PER HOUR
     Route: 062
     Dates: start: 20120103, end: 20120108
  16. MORPHINE SULFATE [Concomitant]
     Indication: PAIN
     Dosage: 5 MG, 1X/DAY
     Route: 048
     Dates: start: 20120103, end: 20120108
  17. AXITINIB [Suspect]
     Indication: HEPATIC CANCER METASTATIC
     Dosage: 3 MG, 2X/DAY
     Route: 048
     Dates: start: 20111206, end: 20120105
  18. POLERY [Concomitant]
     Indication: COUGH
     Dosage: 3X/DAY
     Route: 048
     Dates: start: 20111216, end: 20111227

REACTIONS (2)
  - LUNG DISORDER [None]
  - ASTHENIA [None]
